FAERS Safety Report 11413002 (Version 1)
Quarter: 2015Q3

REPORT INFORMATION
  Report Type: Spontaneous
  Country: JP (occurrence: JP)
  Receive Date: 20150824
  Receipt Date: 20150824
  Transmission Date: 20151125
  Serious: Yes (Death, Hospitalization, Other)
  Sender: FDA-Public Use
  Company Number: JP-BAYER-2015-402198

PATIENT
  Age: 58 Year
  Sex: Female

DRUGS (4)
  1. BLEOMYCIN [Suspect]
     Active Substance: BLEOMYCIN SULFATE
  2. DACARBAZINE. [Suspect]
     Active Substance: DACARBAZINE
  3. ADRIAMYCIN [Suspect]
     Active Substance: DOXORUBICIN HYDROCHLORIDE
  4. VINBLASTINE [Suspect]
     Active Substance: VINBLASTINE
     Indication: HODGKIN^S DISEASE MIXED CELLULARITY STAGE UNSPECIFIED

REACTIONS (8)
  - Acute myeloid leukaemia [None]
  - Panniculitis [None]
  - Cystitis [None]
  - Septic shock [Fatal]
  - Myelodysplastic syndrome [None]
  - Cytopenia [None]
  - Multi-organ failure [Fatal]
  - Disseminated intravascular coagulation [Fatal]
